FAERS Safety Report 4632207-2 (Version None)
Quarter: 2005Q2

REPORT INFORMATION
  Report Type: 
  Country: None (occurrence: None)
  Receive Date: 20050331
  Receipt Date: 20040726
  Transmission Date: 20051028
  Serious: Yes (Other)
  Sender: FDA-Public Use
  Company Number: 200413683BCC

PATIENT
  Age: 35 Year
  Sex: Female
  Weight: 79.3795 kg

DRUGS (4)
  1. ALEVE [Suspect]
     Indication: PHARYNGOLARYNGEAL PAIN
     Dosage: 440 MG PRN ORAL
     Route: 048
     Dates: start: 20040724
  2. AVELOX [Concomitant]
  3. SINGULAIR [Concomitant]
  4. ZYRTEC [Concomitant]

REACTIONS (4)
  - ABDOMINAL PAIN [None]
  - ABNORMAL FAECES [None]
  - FLATULENCE [None]
  - MENSTRUATION IRREGULAR [None]
